FAERS Safety Report 17521490 (Version 2)
Quarter: 2020Q1

REPORT INFORMATION
  Report Type: Spontaneous
  Country: GB (occurrence: GB)
  Receive Date: 20200310
  Receipt Date: 20200318
  Transmission Date: 20200409
  Serious: Yes (Death)
  Sender: FDA-Public Use
  Company Number: GB-MYLANLABS-2020M1024611

PATIENT
  Age: 30 Year
  Sex: Male
  Weight: 54.6 kg

DRUGS (1)
  1. CLOZARIL [Suspect]
     Active Substance: CLOZAPINE
     Indication: SCHIZOPHRENIA
     Dosage: 450 MILLIGRAM, QD
     Route: 048
     Dates: start: 20140130

REACTIONS (1)
  - Completed suicide [Fatal]

NARRATIVE: CASE EVENT DATE: 20200228
